FAERS Safety Report 16978201 (Version 1)
Quarter: 2019Q4

REPORT INFORMATION
  Report Type: Report from Study
  Country: ES (occurrence: ES)
  Receive Date: 20191031
  Receipt Date: 20191031
  Transmission Date: 20200122
  Serious: Yes (Other)
  Sender: FDA-Public Use
  Company Number: ES-ACCORD-159407

PATIENT
  Age: 77 Year
  Sex: Male

DRUGS (2)
  1. ATORVASTATIN/ATORVASTATIN CALCIUM [Suspect]
     Active Substance: ATORVASTATIN CALCIUM
     Indication: PRODUCT USED FOR UNKNOWN INDICATION
     Route: 065
  2. DAPTOMYCIN. [Interacting]
     Active Substance: DAPTOMYCIN
     Indication: ENDOCARDITIS
     Route: 065

REACTIONS (3)
  - Musculoskeletal disorder [Unknown]
  - Drug interaction [Unknown]
  - Blood creatine phosphokinase increased [Unknown]
